FAERS Safety Report 24883142 (Version 1)
Quarter: 2025Q1

REPORT INFORMATION
  Report Type: Spontaneous
  Country: US (occurrence: US)
  Receive Date: 20250124
  Receipt Date: 20250124
  Transmission Date: 20250409
  Serious: No
  Sender: JOHNSON AND JOHNSON
  Company Number: US-JNJFOC-20241278309

PATIENT
  Age: 25 Year
  Sex: Female
  Weight: 80.7 kg

DRUGS (19)
  1. OPSUMIT [Suspect]
     Active Substance: MACITENTAN
     Indication: Product used for unknown indication
     Route: 048
     Dates: start: 2024
  2. REMODULIN [Suspect]
     Active Substance: TREPROSTINIL
     Indication: Pulmonary arterial hypertension
     Route: 058
     Dates: start: 20240905
  3. TADALAFIL [Suspect]
     Active Substance: TADALAFIL
     Indication: Product used for unknown indication
     Route: 065
     Dates: start: 2024
  4. MELATONIN [Concomitant]
     Active Substance: MELATONIN
  5. FUROSEMIDE [Concomitant]
     Active Substance: FUROSEMIDE
  6. NITROFURANTOIN [Concomitant]
     Active Substance: NITROFURANTOIN
  7. SODIUM CHLORIDE [Concomitant]
     Active Substance: SODIUM CHLORIDE
  8. PHENAZOPYRIDINE HYDROCHLORIDE [Concomitant]
     Active Substance: PHENAZOPYRIDINE HYDROCHLORIDE
  9. KETAMINE HYDROCHLORIDE [Concomitant]
     Active Substance: KETAMINE HYDROCHLORIDE
  10. LECITHIN [Concomitant]
     Active Substance: LECITHIN
  11. CLONIDINE [Concomitant]
     Active Substance: CLONIDINE
  12. KETOPROFEN [Concomitant]
     Active Substance: KETOPROFEN
  13. ALPRAZOLAM [Concomitant]
     Active Substance: ALPRAZOLAM
  14. LIDOCAINE HYDROCHLORIDE [Concomitant]
     Active Substance: LIDOCAINE HYDROCHLORIDE
  15. AMITRIPTYLINE [Concomitant]
     Active Substance: AMITRIPTYLINE
  16. GABAPENTIN [Concomitant]
     Active Substance: GABAPENTIN
  17. POLOXAMER [Concomitant]
     Active Substance: POLOXAMER
  18. DEPO-PROVERA [Concomitant]
     Active Substance: MEDROXYPROGESTERONE ACETATE
  19. TIRZEPATIDE [Concomitant]
     Active Substance: TIRZEPATIDE

REACTIONS (11)
  - Influenza like illness [Unknown]
  - Nausea [Recovering/Resolving]
  - Decreased appetite [Unknown]
  - Weight decreased [Unknown]
  - Vomiting [Recovered/Resolved]
  - Diarrhoea [Recovered/Resolved]
  - Chest pain [Recovered/Resolved]
  - Headache [Recovering/Resolving]
  - Gingival pain [Recovering/Resolving]
  - Dyspnoea [Recovering/Resolving]
  - Nasal discomfort [Recovering/Resolving]

NARRATIVE: CASE EVENT DATE: 20240101
